FAERS Safety Report 6743116-7 (Version None)
Quarter: 2010Q2

REPORT INFORMATION
  Report Type: 
  Country: None (occurrence: None)
  Receive Date: 20100525
  Receipt Date: 20100511
  Transmission Date: 20101027
  Serious: Yes (Other)
  Sender: FDA-Public Use
  Company Number: 590008

PATIENT
  Sex: Female

DRUGS (3)
  1. EPIRUBICIN HYDROCHLORIDE [Suspect]
     Indication: BREAST CANCER METASTATIC
     Dates: start: 20060101
  2. FLUOROURACIL [Suspect]
     Indication: BREAST CANCER METASTATIC
     Dates: start: 20060101
  3. CYCLOPHOSPHAMIDE [Suspect]
     Indication: BREAST CANCER METASTATIC
     Dates: start: 20060101

REACTIONS (7)
  - APHASIA [None]
  - CHOLELITHIASIS [None]
  - DISORIENTATION [None]
  - DISTURBANCE IN ATTENTION [None]
  - HEADACHE [None]
  - MEMORY IMPAIRMENT [None]
  - PAIN [None]
